FAERS Safety Report 8424977 (Version 2)
Quarter: 2013Q2

REPORT INFORMATION
  Report Type: Report from Study
  Country: DE (occurrence: DE)
  Receive Date: 20120224
  Receipt Date: 20130621
  Transmission Date: 20140414
  Serious: Yes (Hospitalization, Other)
  Sender: FDA-Public Use
  Company Number: DE-ABBOTT-12P-062-0905195-00

PATIENT
  Age: 36 Year
  Sex: Male

DRUGS (5)
  1. HUMIRA [Suspect]
     Indication: CROHN^S DISEASE
     Route: 058
     Dates: start: 20090325
  2. HUMIRA [Suspect]
     Route: 058
  3. HUMIRA [Suspect]
     Route: 058
     Dates: start: 20090728, end: 20091208
  4. PREDNISOLON [Concomitant]
     Indication: CROHN^S DISEASE
     Dates: start: 2009
  5. GOLIMUMAB [Concomitant]
     Indication: CROHN^S DISEASE
     Dates: start: 20090127, end: 201201

REACTIONS (1)
  - Fistula [Unknown]
